FAERS Safety Report 9971057 (Version 2)
Quarter: 2014Q1

REPORT INFORMATION
  Report Type: Report from Study
  Country: US (occurrence: US)
  Receive Date: 20140306
  Receipt Date: 20140306
  Transmission Date: 20141002
  Serious: No
  Sender: FDA-Public Use
  Company Number: US-ABBVIE-13P-163-1134883-00

PATIENT
  Age: 71 Year
  Sex: Female
  Weight: 45.4 kg

DRUGS (7)
  1. HUMIRA [Suspect]
     Indication: COLITIS ULCERATIVE
     Dates: start: 20130724, end: 20130725
  2. HUMIRA [Suspect]
     Indication: CROHN^S DISEASE
     Dates: start: 20130808, end: 20130808
  3. HUMIRA [Suspect]
  4. CLIMARA [Concomitant]
     Indication: HORMONE REPLACEMENT THERAPY
  5. BABY ASPIRIN [Concomitant]
     Indication: CARDIOVASCULAR EVENT PROPHYLAXIS
  6. PROTONIX [Concomitant]
     Indication: ULCER
     Dosage: AM
  7. BENADRYL [Concomitant]
     Indication: SEASONAL ALLERGY
     Route: 048

REACTIONS (11)
  - Rash [Not Recovered/Not Resolved]
  - Rash papular [Not Recovered/Not Resolved]
  - Rash pruritic [Not Recovered/Not Resolved]
  - Malaise [Recovering/Resolving]
  - Abdominal pain [Recovering/Resolving]
  - Erythema [Recovered/Resolved]
  - Pruritus [Recovering/Resolving]
  - Burning sensation [Recovering/Resolving]
  - Heart rate increased [Recovering/Resolving]
  - Nodule [Recovering/Resolving]
  - Erythema [Recovering/Resolving]
